FAERS Safety Report 4907143-4 (Version None)
Quarter: 2006Q1

REPORT INFORMATION
  Report Type: 
  Country: None (occurrence: None)
  Receive Date: 20060206
  Receipt Date: 20051220
  Transmission Date: 20060701
  Serious: Yes (Hospitalization)
  Sender: FDA-Public Use
  Company Number: FRPFM-E-20050132-V001

PATIENT
  Age: 58 Year
  Sex: Male

DRUGS (1)
  1. NAVELBINE (VINORELBINE) SOLUTION FOR INJECTION [Suspect]
     Indication: LUNG ADENOCARCINOMA
     Route: 042
     Dates: start: 20051107, end: 20051107

REACTIONS (4)
  - NEUTROPENIA [None]
  - PULMONARY EMBOLISM [None]
  - SEPTIC SHOCK [None]
  - THROMBOCYTOPENIA [None]
